FAERS Safety Report 13346612 (Version 1)
Quarter: 2017Q1

REPORT INFORMATION
  Report Type: Spontaneous
  Country: US (occurrence: US)
  Receive Date: 20170317
  Receipt Date: 20170317
  Transmission Date: 20170428
  Serious: Yes (Life-Threatening, Hospitalization)
  Sender: FDA-Public Use
  Company Number: US-SA-2017SA041119

PATIENT
  Age: 30 Year
  Sex: Female

DRUGS (6)
  1. FENTANYL. [Suspect]
     Active Substance: FENTANYL
     Indication: EPIDURAL ANAESTHESIA
     Route: 008
  2. EPINEPHRINE. [Suspect]
     Active Substance: EPINEPHRINE
     Indication: EPIDURAL ANAESTHESIA
     Dosage: 1:600,000 AT A RATE OF 14 ML/HR WITH AN OPTION OF A 10ML BOLUS EVERY 15 MINUTES WAS INITIATED
     Route: 008
  3. FENTANYL. [Suspect]
     Active Substance: FENTANYL
     Indication: EPIDURAL ANAESTHESIA
     Dosage: 2 ML OF 50MCG/ML; INFUSION?GIVEN OVER ROUGHLY 10 SECONDS FOR A PERINEAL DOSE
     Route: 008
  4. LIDOCAINE HYDROCHLORIDE. [Suspect]
     Active Substance: LIDOCAINE HYDROCHLORIDE
     Indication: EPIDURAL ANAESTHESIA
     Dosage: 2 PERCENT; INFUSION
     Route: 008
  5. LIDOCAINE HYDROCHLORIDE. [Suspect]
     Active Substance: LIDOCAINE HYDROCHLORIDE
     Indication: EPIDURAL ANAESTHESIA
     Dosage: 1%; INFUSION
     Route: 008
  6. BUPIVACAINE. [Suspect]
     Active Substance: BUPIVACAINE
     Indication: EPIDURAL ANAESTHESIA
     Dosage: AT A RATE OF 14 ML/HR WITH AN OPTION OF A 10ML BOLUS EVERY 15 MINUTES
     Route: 008

REACTIONS (9)
  - Dyspnoea [Unknown]
  - Maternal exposure during pregnancy [Unknown]
  - Anaesthetic complication [Unknown]
  - Hypotension [Recovered/Resolved]
  - Mental status changes [Unknown]
  - Incorrect drug administration rate [Unknown]
  - Muscular weakness [Unknown]
  - Spinal anaesthesia [Unknown]
  - Nausea [Unknown]
